FAERS Safety Report 5314409-5 (Version None)
Quarter: 2007Q1

REPORT INFORMATION
  Report Type: 
  Country: None (occurrence: None)
  Receive Date: 20070130
  Receipt Date: 20060828
  Transmission Date: 20070707
  Serious: Yes (Hospitalization)
  Sender: FDA-Public Use
  Company Number: 147275USA

PATIENT
  Age: 49 Year
  Sex: Female

DRUGS (7)
  1. COPAXONE [Suspect]
     Indication: MULTIPLE SCLEROSIS
     Dosage: 20 MG (20 MG, ONCE A DAY), SUBCUTANEOUS
     Route: 058
     Dates: start: 20000101, end: 20060601
  2. FLUOXETINE HYDROCHLORIDE [Concomitant]
  3. MODAFINIL [Concomitant]
  4. DIAZEPAM [Concomitant]
  5. METOPROLOL SUCCINATE [Concomitant]
  6. ATORVASTATIN CALCIUM [Concomitant]
  7. ASPIRIN [Concomitant]

REACTIONS (3)
  - ANGINA PECTORIS [None]
  - BLOOD PRESSURE INCREASED [None]
  - MYOCARDIAL INFARCTION [None]
